FAERS Safety Report 24281311 (Version 4)
Quarter: 2025Q3

REPORT INFORMATION
  Report Type: Spontaneous
  Country: US (occurrence: US)
  Receive Date: 20240904
  Receipt Date: 20250811
  Transmission Date: 20251021
  Serious: No
  Sender: CALLIDITAS THERAPEUTICS AB
  Company Number: US-Calliditas-2024CAL01642

PATIENT
  Age: 23 Year
  Sex: Male

DRUGS (8)
  1. TARPEYO [Suspect]
     Active Substance: BUDESONIDE
     Indication: IgA nephropathy
     Route: 048
     Dates: start: 20240806
  2. TUMS [Concomitant]
     Active Substance: CALCIUM CARBONATE
  3. LASIX [Concomitant]
     Active Substance: FUROSEMIDE
  4. LISINOPRIL [Concomitant]
     Active Substance: LISINOPRIL
  5. OMEPRAZOLE [Concomitant]
     Active Substance: OMEPRAZOLE
  6. PREDNISONE [Concomitant]
     Active Substance: PREDNISONE
  7. VITAMIN D NOS [Concomitant]
     Active Substance: CHOLECALCIFEROL\ERGOCALCIFEROL
  8. FARXIGA [Concomitant]
     Active Substance: DAPAGLIFLOZIN PROPANEDIOL

REACTIONS (2)
  - Oedema peripheral [Unknown]
  - Adverse drug reaction [Unknown]

NARRATIVE: CASE EVENT DATE: 20240801
